FAERS Safety Report 16628010 (Version 4)
Quarter: 2019Q3

REPORT INFORMATION
  Report Type: Spontaneous
  Country: US (occurrence: US)
  Receive Date: 20190724
  Receipt Date: 20190920
  Transmission Date: 20191004
  Serious: No
  Sender: FDA-Public Use
  Company Number: US-JNJFOC-20190732313

PATIENT
  Age: 55 Year
  Sex: Female

DRUGS (17)
  1. LYRICA [Concomitant]
     Active Substance: PREGABALIN
     Dosage: 75 MG, UNK
  2. LORATADINE. [Concomitant]
     Active Substance: LORATADINE
  3. PHENERGAN [Concomitant]
     Active Substance: PROMETHAZINE HYDROCHLORIDE
     Dosage: 25 MG, UNK
  4. IMBRUVICA [Suspect]
     Active Substance: IBRUTINIB
     Dosage: 420 MG, QOD
     Route: 048
  5. CANNABIS SATIVA OIL [Concomitant]
     Active Substance: CANNABIS SATIVA SUBSP. INDICA TOP
     Dosage: UNK, PRN
  6. ATIVAN [Concomitant]
     Active Substance: LORAZEPAM
  7. CLARITIN [Concomitant]
     Active Substance: LORATADINE
  8. NAPROXEN. [Concomitant]
     Active Substance: NAPROXEN
     Dosage: UNK, QOD
  9. FLONASE [Suspect]
     Active Substance: FLUTICASONE PROPIONATE
     Route: 065
  10. DIFLUCAN [Concomitant]
     Active Substance: FLUCONAZOLE
  11. IMBRUVICA [Suspect]
     Active Substance: IBRUTINIB
     Dosage: 420 MG, QOD (EVERY OTHER DAY)
     Route: 048
     Dates: start: 201907
  12. IMBRUVICA [Suspect]
     Active Substance: IBRUTINIB
     Dosage: 420 MG, QD
     Route: 048
     Dates: start: 20190516
  13. MELOXICAM. [Concomitant]
     Active Substance: MELOXICAM
  14. IMBRUVICA [Suspect]
     Active Substance: IBRUTINIB
     Indication: CHRONIC LYMPHOCYTIC LEUKAEMIA
     Dosage: 420 MG, QD
     Route: 048
  15. IMBRUVICA [Suspect]
     Active Substance: IBRUTINIB
     Dosage: 420 MG, QOD (EVERY OTHER DAY)
     Route: 048
     Dates: start: 20190613
  16. LORTAB [Concomitant]
     Active Substance: ACETAMINOPHEN\HYDROCODONE BITARTRATE
     Dosage: 7.5 UNK, UNK
  17. ZANAFLEX [Concomitant]
     Active Substance: TIZANIDINE HYDROCHLORIDE
     Dosage: 4 MG, UNK

REACTIONS (9)
  - White blood cell count increased [Recovering/Resolving]
  - Fungal infection [Unknown]
  - Bone pain [Not Recovered/Not Resolved]
  - Rash macular [Not Recovered/Not Resolved]
  - Fatigue [Not Recovered/Not Resolved]
  - Haematochezia [Unknown]
  - Influenza like illness [Not Recovered/Not Resolved]
  - Lymphadenopathy [Unknown]
  - Fluid retention [Not Recovered/Not Resolved]

NARRATIVE: CASE EVENT DATE: 20190220
